FAERS Safety Report 25914036 (Version 2)
Quarter: 2025Q4

REPORT INFORMATION
  Report Type: Report from Study
  Country: US (occurrence: US)
  Receive Date: 20251013
  Receipt Date: 20251031
  Transmission Date: 20260118
  Serious: Yes (Hospitalization, Other)
  Sender: ABBVIE
  Company Number: US-ABBVIE-6497895

PATIENT
  Age: 67 Year
  Sex: Female

DRUGS (2)
  1. CREON [Suspect]
     Active Substance: PANCRELIPASE AMYLASE\PANCRELIPASE LIPASE\PANCRELIPASE PROTEASE
     Indication: Pancreatitis
     Dosage: 3CAPS/MEAL, TAKEN WITH ALL MEALS, FORM STRENGTH: 36000, FORM STRENGTH UNITS: UNIT
     Route: 048
     Dates: start: 2020
  2. METFORMIN [Concomitant]
     Active Substance: METFORMIN HYDROCHLORIDE
     Indication: Blood cholesterol abnormal

REACTIONS (5)
  - Pancreatitis acute [Recovering/Resolving]
  - Abdominal pain [Recovering/Resolving]
  - Pancreatic cyst [Unknown]
  - Weight decreased [Not Recovered/Not Resolved]
  - Intestinal cyst [Recovered/Resolved]

NARRATIVE: CASE EVENT DATE: 20210101
